FAERS Safety Report 16718547 (Version 1)
Quarter: 2019Q3

REPORT INFORMATION
  Report Type: Spontaneous
  Country: US (occurrence: US)
  Receive Date: 20190820
  Receipt Date: 20190820
  Transmission Date: 20191005
  Serious: No
  Sender: FDA-Public Use
  Company Number: US-TEVA-764682ACC

PATIENT
  Sex: Female

DRUGS (2)
  1. COPAXONE [Suspect]
     Active Substance: GLATIRAMER ACETATE
     Dosage: UNKNOWN FORM STRENGTH
  2. DMT [DIMETHYLTRYPTAMINE] [Suspect]
     Active Substance: DIMETHYLTRYPTAMINE
     Route: 048

REACTIONS (1)
  - Maternal exposure during pregnancy [Unknown]
